FAERS Safety Report 14247872 (Version 2)
Quarter: 2017Q4

REPORT INFORMATION
  Report Type: Spontaneous
  Country: DE (occurrence: DE)
  Receive Date: 20171204
  Receipt Date: 20171220
  Transmission Date: 20180321
  Serious: Yes (Hospitalization, Other)
  Sender: FDA-Public Use
  Company Number: DE-JNJFOC-20171201893

PATIENT
  Age: 94 Year
  Sex: Female
  Weight: 49 kg

DRUGS (1)
  1. XARELTO [Suspect]
     Active Substance: RIVAROXABAN
     Indication: ATRIAL FIBRILLATION
     Dosage: 15 MG TABLET
     Route: 048

REACTIONS (3)
  - Malabsorption from administration site [Unknown]
  - Thrombosis [Unknown]
  - Diarrhoea [Unknown]
